FAERS Safety Report 18579123 (Version 1)
Quarter: 2020Q4

REPORT INFORMATION
  Report Type: Spontaneous
  Country: US (occurrence: US)
  Receive Date: 20201202
  Receipt Date: 20201202
  Transmission Date: 20210114
  Serious: Yes (Life-Threatening)
  Sender: FDA-Public Use
  Company Number: None

PATIENT
  Age: 63 Year
  Sex: Male

DRUGS (1)
  1. TIOTROPIUM [Suspect]
     Active Substance: TIOTROPIUM
     Indication: CHRONIC OBSTRUCTIVE PULMONARY DISEASE
     Dates: start: 20200611, end: 20200820

REACTIONS (2)
  - Anaphylactic reaction [None]
  - Pharyngeal swelling [None]

NARRATIVE: CASE EVENT DATE: 20200820
